FAERS Safety Report 7559691-9 (Version None)
Quarter: 2011Q2

REPORT INFORMATION
  Report Type: 
  Country: None (occurrence: None)
  Receive Date: 20110621
  Receipt Date: 20110608
  Transmission Date: 20111010
  Serious: Yes (Other)
  Sender: FDA-Public Use
  Company Number: US-ELI_LILLY_AND_COMPANY-US201106002756

PATIENT
  Age: 35 Year
  Sex: Female
  Weight: 104.3 kg

DRUGS (1)
  1. PROZAC [Suspect]

REACTIONS (1)
  - LOSS OF CONSCIOUSNESS [None]
